FAERS Safety Report 4666190-0 (Version None)
Quarter: 2005Q2

REPORT INFORMATION
  Report Type: 
  Country: None (occurrence: None)
  Receive Date: 20050519
  Receipt Date: 20020110
  Transmission Date: 20051028
  Serious: Yes (Life-Threatening, Hospitalization, Disabling, Other)
  Sender: FDA-Public Use
  Company Number: US-GLAXOSMITHKLINE-A0357332B

PATIENT
  Age: 43 Year
  Sex: Male
  Weight: 68.2 kg

DRUGS (2)
  1. BC HEADACHE POWDER [Suspect]
     Indication: ILL-DEFINED DISORDER
     Route: 048
  2. CONTAC 12 HOUR [Concomitant]
     Route: 048

REACTIONS (16)
  - APHASIA [None]
  - BLEEDING TIME PROLONGED [None]
  - BRAIN HERNIATION [None]
  - CEREBROVASCULAR ACCIDENT [None]
  - COMA [None]
  - CONFUSIONAL STATE [None]
  - ENCEPHALOPATHY [None]
  - HAEMORRHAGIC STROKE [None]
  - HEMIPARESIS [None]
  - HYPERTENSION [None]
  - MEMORY IMPAIRMENT [None]
  - MYOCARDIAL INFARCTION [None]
  - PYREXIA [None]
  - SUBDURAL HAEMATOMA [None]
  - SUPRAVENTRICULAR TACHYCARDIA [None]
  - VENTRICULAR DRAINAGE [None]
